FAERS Safety Report 20001899 (Version 1)
Quarter: 2021Q4

REPORT INFORMATION
  Report Type: Spontaneous
  Country: FR (occurrence: FR)
  Receive Date: 20211027
  Receipt Date: 20211027
  Transmission Date: 20220303
  Serious: Yes (Hospitalization, Other)
  Sender: FDA-Public Use
  Company Number: FR-GLAXOSMITHKLINE-FR2021GSK217027

PATIENT
  Age: 50 Year
  Sex: Male

DRUGS (9)
  1. PREDNISOLONE [Suspect]
     Active Substance: PREDNISOLONE
     Indication: Mantle cell lymphoma
     Dosage: 3 COURSES
  2. ACYCLOVIR [Suspect]
     Active Substance: ACYCLOVIR
     Indication: Immunosuppression
     Dosage: 30 MG/KG, 1D
     Route: 042
  3. CYCLOPHOSPHAMIDE [Suspect]
     Active Substance: CYCLOPHOSPHAMIDE
     Indication: Mantle cell lymphoma
     Dosage: 3 COURSES
  4. VINCRISTINE [Suspect]
     Active Substance: VINCRISTINE
     Indication: Mantle cell lymphoma
     Dosage: 3 COURSES
  5. RITUXIMAB [Suspect]
     Active Substance: RITUXIMAB
     Indication: Mantle cell lymphoma
     Dosage: 3 COURSES
  6. DEXAMETHASONE [Suspect]
     Active Substance: DEXAMETHASONE
     Indication: Mantle cell lymphoma
     Dosage: 3 COURSES
  7. CYTARABINE [Suspect]
     Active Substance: CYTARABINE
     Indication: Mantle cell lymphoma
     Dosage: 3 COURSES
  8. OXALIPLATIN [Suspect]
     Active Substance: OXALIPLATIN
     Indication: Mantle cell lymphoma
     Dosage: 3 COURSES
  9. FILGRASTIM [Concomitant]
     Active Substance: FILGRASTIM
     Indication: White blood cell count abnormal
     Dosage: UNK

REACTIONS (12)
  - Immune reconstitution inflammatory syndrome [Recovered/Resolved]
  - Vision blurred [Recovered/Resolved]
  - Visual acuity reduced [Recovered/Resolved]
  - Ophthalmoplegia [Recovered/Resolved]
  - Exophthalmos [Recovered/Resolved]
  - Conjunctival oedema [Recovered/Resolved]
  - Papilloedema [Recovered/Resolved]
  - Cytomegalovirus infection [Unknown]
  - Scleritis [Recovered/Resolved]
  - Conjunctivitis [Recovered/Resolved]
  - Immunosuppression [Recovered/Resolved]
  - Drug ineffective [Unknown]
